FAERS Safety Report 4570189-2 (Version None)
Quarter: 2005Q1

REPORT INFORMATION
  Report Type: 
  Country: None (occurrence: None)
  Receive Date: 20050204
  Receipt Date: 20040907
  Transmission Date: 20050727
  Serious: Yes (Hospitalization)
  Sender: FDA-Public Use
  Company Number: GB-BRISTOL-MYERS SQUIBB COMPANY-12693933

PATIENT
  Age: 58 Year
  Sex: Female
  Weight: 54 kg

DRUGS (2)
  1. CISPLATIN [Suspect]
     Indication: ENDOMETRIAL CANCER
     Dosage: START DATE:  20-JUL-2004
     Dates: start: 20040809, end: 20040809
  2. DOXORUBICIN HCL [Suspect]
     Indication: ENDOMETRIAL CANCER
     Dosage: START DATE:  20-JUL-2004
     Dates: start: 20040809, end: 20040809

REACTIONS (4)
  - DEHYDRATION [None]
  - NEUTROPENIA [None]
  - STAPHYLOCOCCAL INFECTION [None]
  - VOMITING [None]
